FAERS Safety Report 26096801 (Version 1)
Quarter: 2025Q4

REPORT INFORMATION
  Report Type: Spontaneous
  Country: US (occurrence: US)
  Receive Date: 20251127
  Receipt Date: 20251127
  Transmission Date: 20260118
  Serious: No
  Sender: TOLMAR
  Company Number: US-Tolmar-TLM-2025-08797

PATIENT
  Sex: Female
  Weight: 112.5 kg

DRUGS (4)
  1. ELIGARD [Suspect]
     Active Substance: LEUPROLIDE ACETATE
     Indication: Amenorrhoea
     Dosage: (BOX) LOT NUMBER 15364CUS, EXPIRATION DATE 11-2026, SERIAL NUMBER 4907153983501, NDC?NUMBER 62935227
  2. ELIGARD [Suspect]
     Active Substance: LEUPROLIDE ACETATE
     Dosage: REPLACEMENT DOSE
  3. DEVICE [Suspect]
     Active Substance: DEVICE
     Indication: Amenorrhoea
     Dosage: (BOX) LOT NUMBER 15364CUS, EXPIRATION DATE 11-2026, SERIAL NUMBER 4907153983501, NDC?NUMBER 62935227
     Route: 065
  4. UNSPECIFIED INGREDIENT [Suspect]
     Active Substance: UNSPECIFIED INGREDIENT
     Indication: Product used for unknown indication

REACTIONS (4)
  - Intercepted product preparation error [Unknown]
  - Off label use [Unknown]
  - Device occlusion [Unknown]
  - Wrong technique in product usage process [Unknown]
